FAERS Safety Report 18067137 (Version 1)
Quarter: 2020Q3

REPORT INFORMATION
  Report Type: Spontaneous
  Country: FR (occurrence: FR)
  Receive Date: 20200724
  Receipt Date: 20200724
  Transmission Date: 20201103
  Serious: Yes (Other)
  Sender: FDA-Public Use
  Company Number: FR-SA-2020SA192279

PATIENT

DRUGS (7)
  1. CODOLIPRANE [Concomitant]
     Active Substance: ACETAMINOPHEN\CODEINE PHOSPHATE
     Dosage: 3 DF, QD
     Route: 048
  2. NPLATE [Concomitant]
     Active Substance: ROMIPLOSTIM
     Indication: THROMBOCYTOPENIA
     Dosage: 800 UG, QW
     Route: 058
  3. DAPTOMYCINE [Concomitant]
     Active Substance: DAPTOMYCIN
     Indication: POST PROCEDURAL INFECTION
     Dosage: 700 MG, QD
     Route: 048
     Dates: start: 20191114
  4. ZELITREX [Concomitant]
     Active Substance: VALACYCLOVIR HYDROCHLORIDE
     Dosage: 500 MG, QD
     Route: 048
  5. LOVENOX [Concomitant]
     Active Substance: ENOXAPARIN SODIUM
     Dosage: 0.4 ML, QD
     Route: 058
  6. PERMIXON [Concomitant]
     Active Substance: HERBALS\SAW PALMETTO
     Indication: BENIGN PROSTATIC HYPERPLASIA
     Dosage: 160 MG, QD
     Route: 048
  7. RIFAMPICIN [Suspect]
     Active Substance: RIFAMPIN
     Indication: POST PROCEDURAL INFECTION
     Dosage: 900 MG, QD
     Route: 048
     Dates: start: 20191114, end: 20191128

REACTIONS (1)
  - Hepatitis cholestatic [Recovered/Resolved]

NARRATIVE: CASE EVENT DATE: 20191128
